FAERS Safety Report 10543780 (Version 1)
Quarter: 2014Q4

REPORT INFORMATION
  Report Type: Spontaneous
  Country: US (occurrence: None)
  Receive Date: 20141024
  Receipt Date: 20141024
  Transmission Date: 20150529
  Serious: No
  Sender: FDA-Public Use
  Company Number: None

PATIENT
  Sex: Female

DRUGS (2)
  1. AFINITOR [Suspect]
     Active Substance: EVEROLIMUS
     Indication: BREAST CANCER
     Route: 048
     Dates: start: 201311
  2. EXEMESTANE. [Suspect]
     Active Substance: EXEMESTANE
     Route: 048

REACTIONS (2)
  - Nail disorder [None]
  - Stomatitis [None]
